FAERS Safety Report 8509019-2 (Version None)
Quarter: 2012Q3

REPORT INFORMATION
  Report Type: 
  Country: None (occurrence: None)
  Receive Date: 20120703
  Receipt Date: 20120604
  Transmission Date: 20120928
  Serious: Yes (Life-Threatening, Hospitalization)
  Sender: FDA-Public Use
  Company Number: 001262075A

PATIENT
  Age: 40 Year
  Sex: Female

DRUGS (1)
  1. SPF 15 ALL DAY MOISTURIZER WITH ALFA [Suspect]
     Dosage: ONCE DAILY DERMAL
     Dates: start: 20120317, end: 20120323

REACTIONS (3)
  - ANAPHYLACTIC REACTION [None]
  - URTICARIA [None]
  - SPEECH DISORDER [None]
